FAERS Safety Report 19946986 (Version 1)
Quarter: 2021Q4

REPORT INFORMATION
  Report Type: Report from Study
  Country: US (occurrence: US)
  Receive Date: 20211013
  Receipt Date: 20211013
  Transmission Date: 20220303
  Serious: No
  Sender: FDA-Public Use
  Company Number: US-NOVARTISTESTPH-NVSC2021US233570

PATIENT
  Sex: Male

DRUGS (1)
  1. ENTRESTO [Suspect]
     Active Substance: SACUBITRIL\VALSARTAN
     Indication: Product used for unknown indication
     Dosage: UNK MG, BID (24/26 MG)
     Route: 048
     Dates: start: 202109

REACTIONS (4)
  - Memory impairment [Unknown]
  - Fatigue [Unknown]
  - Dizziness [Unknown]
  - Product dose omission issue [Unknown]
